FAERS Safety Report 5511598-4 (Version None)
Quarter: 2007Q4

REPORT INFORMATION
  Report Type: 
  Country: None (occurrence: None)
  Receive Date: 20071109
  Receipt Date: 20071031
  Transmission Date: 20080405
  Serious: No
  Sender: FDA-Public Use
  Company Number: PL-BAXTER-2007BH008772

PATIENT
  Age: 28 Year
  Sex: Female
  Weight: 78 kg

DRUGS (2)
  1. DEXTROSE 5% [Suspect]
     Indication: POSTOPERATIVE CARE
     Route: 042
     Dates: start: 20070911, end: 20070911
  2. DEXTROSE 5% [Suspect]
     Indication: CAESAREAN SECTION
     Route: 042
     Dates: start: 20070911, end: 20070911

REACTIONS (4)
  - BLOOD PRESSURE INCREASED [None]
  - FEELING HOT [None]
  - INFUSION RELATED REACTION [None]
  - TREMOR [None]
